FAERS Safety Report 7570131-6 (Version None)
Quarter: 2011Q2

REPORT INFORMATION
  Report Type: 
  Country: None (occurrence: None)
  Receive Date: 20110622
  Receipt Date: 20110622
  Transmission Date: 20111010
  Serious: No
  Sender: FDA-Public Use
  Company Number: None

PATIENT
  Age: 80 Year
  Sex: Female
  Weight: 61.2356 kg

DRUGS (7)
  1. PHENOBARBITAL TAB [Suspect]
     Indication: CONVULSION
     Dosage: 30MG X 2 BID ORAL
     Route: 048
     Dates: start: 19780101
  2. INCONTINENT PADS [Suspect]
     Indication: PROCEDURAL COMPLICATION
     Dosage: PADS 1-3/DAY  REINSURE, WALMART, POISE
     Dates: start: 20110101
  3. INCONTINENT PADS [Suspect]
     Indication: BLADDER DISORDER
     Dosage: PADS 1-3/DAY  REINSURE, WALMART, POISE
     Dates: start: 20110101
  4. INCONTINENT PADS [Suspect]
     Indication: PROCEDURAL COMPLICATION
     Dosage: PADS 1-3/DAY  REINSURE, WALMART, POISE
     Dates: start: 20110101
  5. INCONTINENT PADS [Suspect]
     Indication: BLADDER DISORDER
     Dosage: PADS 1-3/DAY  REINSURE, WALMART, POISE
     Dates: start: 20110101
  6. INCONTINENT PADS [Suspect]
     Indication: PROCEDURAL COMPLICATION
     Dosage: PADS 1-3/DAY  REINSURE, WALMART, POISE
     Dates: start: 20100101
  7. INCONTINENT PADS [Suspect]
     Indication: BLADDER DISORDER
     Dosage: PADS 1-3/DAY  REINSURE, WALMART, POISE
     Dates: start: 20100101

REACTIONS (4)
  - SOMNOLENCE [None]
  - MALAISE [None]
  - REACTION TO AZO-DYES [None]
  - URINARY INCONTINENCE [None]
